FAERS Safety Report 9362919 (Version 2)
Quarter: 2013Q2

REPORT INFORMATION
  Report Type: Spontaneous
  Country: GB (occurrence: GB)
  Receive Date: 20130624
  Receipt Date: 20130626
  Transmission Date: 20140414
  Serious: Yes (Other)
  Sender: FDA-Public Use
  Company Number: GB-ROCHE-1236159

PATIENT
  Age: 27 Year
  Sex: Female

DRUGS (1)
  1. ROACCUTANE [Suspect]
     Indication: ACNE
     Route: 065
     Dates: start: 2011

REACTIONS (6)
  - Abortion [Unknown]
  - Exposure during pregnancy [Unknown]
  - Malaise [Unknown]
  - Abdominal pain upper [Unknown]
  - Malaise [Unknown]
  - Abdominal pain upper [Unknown]
